FAERS Safety Report 10519267 (Version 1)
Quarter: 2014Q4

REPORT INFORMATION
  Report Type: Spontaneous
  Country: US (occurrence: None)
  Receive Date: 20141014
  Receipt Date: 20141014
  Transmission Date: 20150528
  Serious: No
  Sender: FDA-Public Use
  Company Number: None

PATIENT
  Age: 55 Year
  Sex: Female
  Weight: 68.04 kg

DRUGS (1)
  1. LATISSE [Suspect]
     Active Substance: BIMATOPROST
     Indication: EYELASH THICKENING
     Dosage: APPLY TO LASH BASE DAILY ?ONCE DAILY?APPLIED TO A SURFACE, USUALLY THE SKIN??THERAPY?1-2 YEARS ON AND OFF
     Route: 061

REACTIONS (2)
  - Skin discolouration [None]
  - Madarosis [None]

NARRATIVE: CASE EVENT DATE: 20141009
